FAERS Safety Report 24051806 (Version 4)
Quarter: 2024Q3

REPORT INFORMATION
  Report Type: Spontaneous
  Country: IL (occurrence: IL)
  Receive Date: 20240704
  Receipt Date: 20240806
  Transmission Date: 20241016
  Serious: Yes (Hospitalization, Other)
  Sender: ALEXION PHARMACEUTICALS
  Company Number: IL-ALXN-202406EEA001629IL

PATIENT
  Age: 3 Year
  Sex: Female

DRUGS (2)
  1. KANUMA [Suspect]
     Active Substance: SEBELIPASE ALFA
     Indication: Lysosomal acid lipase deficiency
     Dosage: UNK
     Route: 065
     Dates: start: 202108
  2. KANUMA [Suspect]
     Active Substance: SEBELIPASE ALFA
     Dosage: 4.3 MILLIGRAM/KILOGRAM, QD
     Route: 065

REACTIONS (12)
  - Influenza [Unknown]
  - Gastroenteritis [Not Recovered/Not Resolved]
  - Weight decreased [Unknown]
  - Pyrexia [Recovered/Resolved]
  - Serum ferritin increased [Unknown]
  - Haemoglobin decreased [Recovering/Resolving]
  - Platelet count increased [Unknown]
  - Lipogranuloma [Unknown]
  - Escherichia infection [Not Recovered/Not Resolved]
  - General physical health deterioration [Unknown]
  - Abdominal lymphadenopathy [Unknown]
  - Haemophagocytic lymphohistiocytosis [Unknown]

NARRATIVE: CASE EVENT DATE: 20240401
